FAERS Safety Report 15281436 (Version 1)
Quarter: 2018Q3

REPORT INFORMATION
  Report Type: Spontaneous
  Country: US (occurrence: US)
  Receive Date: 20180815
  Receipt Date: 20180815
  Transmission Date: 20181010
  Serious: No
  Sender: FDA-Public Use
  Company Number: US-ALLERGAN-1832886US

PATIENT
  Sex: Female

DRUGS (4)
  1. FETZIMA [Suspect]
     Active Substance: LEVOMILNACIPRAN HYDROCHLORIDE
     Dosage: 40 MG, UNK
     Route: 048
     Dates: start: 201804
  2. FETZIMA [Suspect]
     Active Substance: LEVOMILNACIPRAN HYDROCHLORIDE
     Indication: DEPRESSION
     Dosage: 120 MG, QD
     Route: 048
     Dates: start: 201804
  3. FETZIMA [Suspect]
     Active Substance: LEVOMILNACIPRAN HYDROCHLORIDE
     Dosage: 20 MG, UNK
     Route: 048
     Dates: start: 201804
  4. FETZIMA [Suspect]
     Active Substance: LEVOMILNACIPRAN HYDROCHLORIDE
     Dosage: 80 MG, UNK
     Route: 048
     Dates: start: 201804

REACTIONS (1)
  - Drug ineffective [Unknown]
